FAERS Safety Report 8773282 (Version 4)
Quarter: 2012Q4

REPORT INFORMATION
  Report Type: 
  Country: US (occurrence: US)
  Receive Date: 20120907
  Receipt Date: 20121022
  Transmission Date: 20130627
  Serious: Yes (Hospitalization, Other)
  Sender: FDA-Public Use
  Company Number: US-009507513-2012SP022605

PATIENT

DRUGS (1)
  1. NUVARING [Suspect]
     Indication: CONTRACEPTION
     Dates: start: 2002, end: 20100516

REACTIONS (24)
  - Hyperlipidaemia [Unknown]
  - Cerebrovascular accident [Recovered/Resolved]
  - Psychiatric symptom [Unknown]
  - Metrorrhagia [Unknown]
  - Varicose vein [Unknown]
  - Tension headache [Unknown]
  - Sinusitis [Unknown]
  - Vertigo [Unknown]
  - Herpes simplex [Unknown]
  - Generalised anxiety disorder [Unknown]
  - Synovial cyst [Unknown]
  - Cervicitis human papilloma virus [Unknown]
  - Uterine polyp [Unknown]
  - Rubber sensitivity [Unknown]
  - Post lumbar puncture syndrome [Recovering/Resolving]
  - Dehydration [Unknown]
  - Acute sinusitis [Unknown]
  - Epidural blood patch [Unknown]
  - Epidural blood patch [Recovering/Resolving]
  - Vertigo [Unknown]
  - Dizziness [Unknown]
  - Asthenia [Unknown]
  - Lumbar puncture [Unknown]
  - Smear cervix abnormal [Unknown]
